FAERS Safety Report 5784650-6 (Version None)
Quarter: 2008Q2

REPORT INFORMATION
  Report Type: 
  Country: None (occurrence: None)
  Receive Date: 20080605
  Receipt Date: 20080501
  Transmission Date: 20081010
  Serious: No
  Sender: FDA-Public Use
  Company Number: A0722097A

PATIENT
  Age: 65 Year
  Sex: Female
  Weight: 105 kg

DRUGS (2)
  1. ALLI [Suspect]
  2. IBUROFEN [Concomitant]

REACTIONS (4)
  - CONSTIPATION [None]
  - FAECES HARD [None]
  - PHARMACEUTICAL PRODUCT COMPLAINT [None]
  - WEIGHT INCREASED [None]
